FAERS Safety Report 6265023-9 (Version None)
Quarter: 2009Q3

REPORT INFORMATION
  Report Type: 
  Country: None (occurrence: None)
  Receive Date: 20090713
  Receipt Date: 20070622
  Transmission Date: 20100115
  Serious: Yes (Hospitalization)
  Sender: FDA-Public Use
  Company Number: US-ASTRAZENECA-2006UW08108

PATIENT
  Age: 16348 Day
  Sex: Female
  Weight: 152.9 kg

DRUGS (16)
  1. SEROQUEL [Suspect]
     Indication: DEPRESSION
     Route: 048
     Dates: start: 20040430, end: 20040702
  2. SEROQUEL [Suspect]
     Indication: MAJOR DEPRESSION
     Route: 048
     Dates: start: 20040430, end: 20040702
  3. SEROQUEL [Suspect]
     Indication: SLEEP APNOEA SYNDROME
     Route: 048
     Dates: start: 20040430, end: 20040702
  4. SEROQUEL [Suspect]
     Dosage: 25 MG - 150 MG
     Route: 048
     Dates: start: 20040518
  5. SEROQUEL [Suspect]
     Dosage: 25 MG - 150 MG
     Route: 048
     Dates: start: 20040518
  6. SEROQUEL [Suspect]
     Dosage: 25 MG - 150 MG
     Route: 048
     Dates: start: 20040518
  7. ABILIFY [Concomitant]
  8. ABILIFY [Concomitant]
     Dosage: 10 - 25 MG
     Route: 065
  9. HYDROCHLOROTHIAZIDE [Concomitant]
     Route: 048
  10. PAROXETINE HCL [Concomitant]
     Route: 065
  11. GLUCOPHAGE [Concomitant]
     Dosage: 500 - 1000 MG
     Route: 065
  12. NORVASC [Concomitant]
     Route: 065
  13. LOPRESSOR [Concomitant]
     Route: 065
  14. PREVACID [Concomitant]
     Route: 065
  15. WELLBUTRIN [Concomitant]
     Route: 065
  16. ZOCOR [Concomitant]
     Route: 065

REACTIONS (2)
  - DIABETES MELLITUS [None]
  - SURGERY [None]
